FAERS Safety Report 8987425 (Version 2)
Quarter: 2013Q1

REPORT INFORMATION
  Report Type: Spontaneous
  Country: JP (occurrence: JP)
  Receive Date: 20121227
  Receipt Date: 20130130
  Transmission Date: 20140127
  Serious: Yes (Hospitalization)
  Sender: FDA-Public Use
  Company Number: JP-NAPPMUNDI-GBR-2012-0012469

PATIENT
  Age: 80 Year
  Sex: Male

DRUGS (8)
  1. OXYCODONE HCL [Suspect]
     Indication: CANCER PAIN
     Dosage: 5 MG, BID
     Route: 048
     Dates: start: 20121119, end: 20121130
  2. DENOSUMAB [Concomitant]
     Indication: BONE LESION
     Dosage: 120 MG, SINGLE
     Route: 058
     Dates: start: 20121120, end: 20121120
  3. LEUPLIN [Concomitant]
     Indication: PRODUCT USED FOR UNKNOWN INDICATION
     Dosage: 11.25 MG, SINGLE
     Route: 058
     Dates: start: 20121121, end: 20121121
  4. NOVAMIN                            /00013301/ [Concomitant]
     Indication: NAUSEA
     Dosage: 10 MG, DAILY
     Route: 048
     Dates: start: 20121119
  5. MAGMITT [Concomitant]
     Indication: CONSTIPATION PROPHYLAXIS
     Dosage: 990 MG, DAILY
     Route: 048
     Dates: start: 20121119
  6. CALCIUM LACTATE [Concomitant]
     Indication: HYPOCALCAEMIA
     Dosage: 3 G, DAILY
     Route: 048
     Dates: start: 20121119
  7. WARKMIN [Concomitant]
     Indication: HYPOCALCAEMIA
     Dosage: 0.5 IU, DAILY
     Route: 048
     Dates: start: 20121119
  8. PROSEXOL [Concomitant]
     Indication: PROSTATE CANCER
     Dosage: 1.5 MG, DAILY
     Route: 048
     Dates: start: 20121119

REACTIONS (4)
  - Hepatic function abnormal [Recovered/Resolved]
  - Aspartate aminotransferase increased [None]
  - Alanine aminotransferase increased [None]
  - Blood lactate dehydrogenase increased [None]
